FAERS Safety Report 15770340 (Version 2)
Quarter: 2019Q1

REPORT INFORMATION
  Report Type: Report from Study
  Country: AU (occurrence: AU)
  Receive Date: 20181228
  Receipt Date: 20190110
  Transmission Date: 20190417
  Serious: Yes (Other)
  Sender: FDA-Public Use
  Company Number: AU-REGENERON PHARMACEUTICALS, INC.-2018-49719

PATIENT

DRUGS (1)
  1. EYLEA [Suspect]
     Active Substance: AFLIBERCEPT
     Indication: DIABETIC RETINAL OEDEMA
     Dosage: BOTH EYE STARTED 3 MONTHS AGO
     Route: 031
     Dates: start: 201809

REACTIONS (3)
  - Eye infection [Unknown]
  - Eye oedema [Unknown]
  - Injection site discomfort [Recovered/Resolved]
